FAERS Safety Report 11939400 (Version 1)
Quarter: 2016Q1

REPORT INFORMATION
  Report Type: Report from Study
  Country: CO (occurrence: CO)
  Receive Date: 20160122
  Receipt Date: 20160122
  Transmission Date: 20160526
  Serious: Yes (Hospitalization)
  Sender: FDA-Public Use
  Company Number: CO-JNJFOC-20160113575

PATIENT
  Age: 46 Year
  Sex: Male
  Weight: 75 kg

DRUGS (2)
  1. RISPERDAL CONSTA [Suspect]
     Active Substance: RISPERIDONE
     Indication: BIPOLAR DISORDER
     Route: 030
     Dates: start: 20151119, end: 20151231
  2. RISPERIDONE. [Suspect]
     Active Substance: RISPERIDONE
     Indication: BIPOLAR DISORDER
     Route: 048

REACTIONS (3)
  - Neglect of personal appearance [Recovered/Resolved with Sequelae]
  - Aggression [Recovered/Resolved with Sequelae]
  - Speech disorder [Recovered/Resolved with Sequelae]

NARRATIVE: CASE EVENT DATE: 20160104
